FAERS Safety Report 12072952 (Version 1)
Quarter: 2016Q1

REPORT INFORMATION
  Report Type: Spontaneous
  Country: ES (occurrence: ES)
  Receive Date: 20160212
  Receipt Date: 20160212
  Transmission Date: 20160526
  Serious: Yes (Hospitalization, Other)
  Sender: FDA-Public Use
  Company Number: ES-BAYER-2016-027604

PATIENT
  Sex: Male

DRUGS (2)
  1. ULTRAVIST [Suspect]
     Active Substance: IOPROMIDE
     Dosage: UNK
     Dates: start: 20151228, end: 20151228
  2. ULTRAVIST [Suspect]
     Active Substance: IOPROMIDE
     Dosage: UNK
     Dates: start: 20151228, end: 20151228

REACTIONS (7)
  - Dysphagia [None]
  - Face oedema [None]
  - Pruritus [None]
  - Abdominal pain [None]
  - Generalised erythema [None]
  - Macroglossia [None]
  - Hypotension [None]

NARRATIVE: CASE EVENT DATE: 20151228
